FAERS Safety Report 4623735-4 (Version None)
Quarter: 2005Q1

REPORT INFORMATION
  Report Type: 
  Country: None (occurrence: None)
  Receive Date: 20050331
  Receipt Date: 20050225
  Transmission Date: 20050727
  Serious: Yes (Death, Hospitalization, Other)
  Sender: FDA-Public Use
  Company Number: PHBS2005JP02933

PATIENT
  Age: 55 Year
  Sex: Male
  Weight: 50 kg

DRUGS (10)
  1. SANDOSTATIN [Suspect]
     Indication: INTESTINAL OBSTRUCTION
     Dosage: 300 UG/DAY
     Route: 058
     Dates: start: 20050215, end: 20050222
  2. DECADRON [Concomitant]
     Indication: NAUSEA
     Dosage: 3.3 MG/DAY
     Dates: start: 20050215, end: 20050314
  3. GASMOTIN [Concomitant]
     Indication: NAUSEA
     Dosage: 15 MG/DAY
     Route: 048
     Dates: start: 20041129, end: 20050223
  4. NAUZELIN [Concomitant]
     Indication: NAUSEA
     Dosage: 30 MG/DAY
     Route: 048
     Dates: start: 20041129, end: 20050223
  5. PRIMPERAN TAB [Concomitant]
     Indication: NAUSEA
     Dosage: 25 MG/DAY
     Route: 048
     Dates: start: 20041129, end: 20050314
  6. SERENACE [Concomitant]
     Indication: NAUSEA
     Dosage: 2.5 MG/DAY
     Dates: start: 20041129, end: 20050314
  7. POTASSIUM CHLORIDE [Concomitant]
     Indication: HYPOKALAEMIA
     Dosage: 20 ML/DAY
     Dates: start: 20050104, end: 20050314
  8. DUROTEP JANSSEN [Concomitant]
     Indication: PAIN
     Dosage: 10 MG/DAY
     Dates: start: 20041207, end: 20050314
  9. HUMULIN R [Concomitant]
     Indication: DIABETES MELLITUS
     Dosage: 6 IU/DAY
     Dates: start: 20050203, end: 20050311
  10. ANPEC [Concomitant]
     Indication: PAIN
     Dosage: 40 MG/DAY
     Route: 054
     Dates: start: 20050214, end: 20050314

REACTIONS (6)
  - COLON CANCER RECURRENT [None]
  - DYSURIA [None]
  - MALIGNANT NEOPLASM PROGRESSION [None]
  - NERVE DEGENERATION [None]
  - NEUROGENIC BLADDER [None]
  - URINARY RETENTION [None]
